FAERS Safety Report 6794888-7 (Version None)
Quarter: 2010Q2

REPORT INFORMATION
  Report Type: 
  Country: None (occurrence: None)
  Receive Date: 20100625
  Receipt Date: 20100615
  Transmission Date: 20101027
  Serious: Yes (Life-Threatening, Other)
  Sender: FDA-Public Use
  Company Number: US-BAYER-201025689NA

PATIENT
  Age: 50 Year
  Sex: Female

DRUGS (2)
  1. AVELOX [Suspect]
     Indication: TOOTH INFECTION
     Dosage: TOTAL DAILY DOSE: 400 MG  UNIT DOSE: 400 MG
     Route: 048
     Dates: start: 20100303, end: 20100303
  2. AVELOX [Suspect]

REACTIONS (5)
  - ANAPHYLACTIC REACTION [None]
  - BALANCE DISORDER [None]
  - LIP SWELLING [None]
  - NAUSEA [None]
  - URTICARIA [None]
